FAERS Safety Report 25431557 (Version 1)
Quarter: 2025Q2

REPORT INFORMATION
  Report Type: Spontaneous
  Country: US (occurrence: US)
  Receive Date: 20250613
  Receipt Date: 20250613
  Transmission Date: 20250716
  Serious: No
  Sender: CSL BEHRING
  Company Number: US-BEH-2025208677

PATIENT
  Sex: Female

DRUGS (1)
  1. HIZENTRA [Suspect]
     Active Substance: HUMAN IMMUNOGLOBULIN G
     Indication: Hypogammaglobulinaemia
     Route: 058
     Dates: start: 202106

REACTIONS (5)
  - Infusion site swelling [Unknown]
  - Gastroenteritis viral [Unknown]
  - Infusion site haemorrhage [Unknown]
  - Lack of infusion site rotation [Unknown]
  - Product leakage [Unknown]
